FAERS Safety Report 8270112-3 (Version None)
Quarter: 2012Q2

REPORT INFORMATION
  Report Type: 
  Country: None (occurrence: None)
  Receive Date: 20120410
  Receipt Date: 20120403
  Transmission Date: 20120825
  Serious: Yes (Other)
  Sender: FDA-Public Use
  Company Number: PHHY2012FR023844

PATIENT
  Sex: Female

DRUGS (2)
  1. ZOMETA [Suspect]
     Indication: NEOPLASM MALIGNANT
     Dosage: 1 INFUSION, QMO
     Dates: start: 20061201, end: 20090101
  2. ARIMIDEX [Concomitant]
     Dates: start: 20090101

REACTIONS (3)
  - LOOSE TOOTH [None]
  - TOOTH LOSS [None]
  - ORAL PAIN [None]
